FAERS Safety Report 6384956-6 (Version None)
Quarter: 2009Q4

REPORT INFORMATION
  Report Type: 
  Country: None (occurrence: None)
  Receive Date: 20091002
  Receipt Date: 20090928
  Transmission Date: 20100525
  Serious: Yes (Hospitalization, Other)
  Sender: FDA-Public Use
  Company Number: US-ALLERGAN-0912147US

PATIENT
  Sex: Female
  Weight: 42.177 kg

DRUGS (13)
  1. BOTOX [Suspect]
     Indication: DYSKINESIA OESOPHAGEAL
     Dosage: UNK
     Route: 030
     Dates: start: 20090109, end: 20090109
  2. BOTOX [Suspect]
     Indication: PNEUMONIA ASPIRATION
  3. BOTOX [Suspect]
     Indication: THERAPEUTIC PROCEDURE
  4. PROPOFOL [Concomitant]
     Indication: ANAESTHESIA
     Dosage: UNK
     Dates: start: 20090109, end: 20090109
  5. COUMADIN [Concomitant]
  6. DYAZIDE [Concomitant]
  7. METOPROLOL ES [Concomitant]
     Dosage: 200 MG, UNK
  8. RESTORIL [Concomitant]
  9. TRAZODONE [Concomitant]
  10. SYNTHROID [Concomitant]
  11. K + [Concomitant]
  12. C + [Concomitant]
  13. OXYCO [Concomitant]

REACTIONS (14)
  - ARTHRALGIA [None]
  - CHEST PAIN [None]
  - CHILLS [None]
  - DEHYDRATION [None]
  - DIARRHOEA [None]
  - DYSPHAGIA [None]
  - INFLUENZA [None]
  - MYALGIA [None]
  - NAUSEA [None]
  - OROPHARYNGEAL PAIN [None]
  - PHARYNGEAL ERYTHEMA [None]
  - PYREXIA [None]
  - RASH GENERALISED [None]
  - TREMOR [None]
